FAERS Safety Report 7849831-6 (Version None)
Quarter: 2011Q4

REPORT INFORMATION
  Report Type: 
  Country: None (occurrence: None)
  Receive Date: 20111025
  Receipt Date: 20111025
  Transmission Date: 20120403
  Serious: Yes (Death, Hospitalization)
  Sender: FDA-Public Use
  Company Number: None

PATIENT
  Sex: Female
  Weight: 76.39 kg

DRUGS (12)
  1. COMPAZINE [Concomitant]
  2. POLYETHYLENE GLYCOL [Concomitant]
  3. ZOFRAN ODT [Concomitant]
  4. CARBOPLATIN [Suspect]
     Dosage: 525 MG
     Dates: end: 20111005
  5. TAXOL [Suspect]
     Dosage: 330 MG
     Dates: end: 20111005
  6. PEPCID [Concomitant]
  7. LASIX [Concomitant]
  8. DOCOSAHEXANOIC ACID/EPA [Concomitant]
  9. NASACORT [Concomitant]
  10. COLACE [Concomitant]
  11. WARFARIN SODIUM [Concomitant]
  12. CENTRUM COMPLETE [Concomitant]

REACTIONS (14)
  - NAUSEA [None]
  - ASCITES [None]
  - ASTHENIA [None]
  - VOMITING [None]
  - NERVOUS SYSTEM DISORDER [None]
  - ENTEROCOCCUS TEST POSITIVE [None]
  - WHITE BLOOD CELL COUNT DECREASED [None]
  - NEUTROPHIL COUNT DECREASED [None]
  - STREPTOCOCCUS TEST POSITIVE [None]
  - ESCHERICHIA TEST POSITIVE [None]
  - STAPHYLOCOCCUS TEST POSITIVE [None]
  - PULMONARY EMBOLISM [None]
  - RESPIRATORY FAILURE [None]
  - PNEUMONIA [None]
